FAERS Safety Report 7580676-0 (Version None)
Quarter: 2011Q2

REPORT INFORMATION
  Report Type: 
  Country: None (occurrence: None)
  Receive Date: 20110629
  Receipt Date: 20110624
  Transmission Date: 20111010
  Serious: Yes (Hospitalization)
  Sender: FDA-Public Use
  Company Number: US-PURDUE-USA-2010-0047837

PATIENT
  Sex: Male

DRUGS (3)
  1. OXYCODONE HCL [Concomitant]
     Indication: PRODUCT USED FOR UNKNOWN INDICATION
     Dosage: 30 MG, UNK
  2. OXYCONTIN [Suspect]
     Indication: PAIN
     Dosage: 80 MG, QID
     Dates: start: 20100101
  3. OXYCONTIN [Suspect]
     Dosage: 40MG, BID

REACTIONS (9)
  - PULMONARY CONGESTION [None]
  - MIGRAINE [None]
  - VOMITING [None]
  - ABDOMINAL PAIN UPPER [None]
  - PNEUMONIA [None]
  - DYSPNOEA [None]
  - VISION BLURRED [None]
  - MEDICATION RESIDUE [None]
  - DYSPEPSIA [None]
